APPROVED DRUG PRODUCT: OXYCODONE AND ACETAMINOPHEN
Active Ingredient: ACETAMINOPHEN; OXYCODONE HYDROCHLORIDE
Strength: 500MG;5MG
Dosage Form/Route: CAPSULE;ORAL
Application: A089994 | Product #001
Applicant: HALSEY DRUG CO INC
Approved: May 4, 1989 | RLD: No | RS: No | Type: DISCN